FAERS Safety Report 11420342 (Version 1)
Quarter: 2015Q3

REPORT INFORMATION
  Report Type: Spontaneous
  Country: DE (occurrence: DE)
  Receive Date: 20150826
  Receipt Date: 20150826
  Transmission Date: 20151125
  Serious: Yes (Life-Threatening)
  Sender: FDA-Public Use
  Company Number: GXKR2015DE003984

PATIENT

DRUGS (15)
  1. 5-FLUOROURACIL [Suspect]
     Active Substance: FLUOROURACIL
     Dates: start: 201502, end: 201503
  2. OXALIPLATIN. [Suspect]
     Active Substance: OXALIPLATIN
     Indication: PRODUCT USED FOR UNKNOWN INDICATION
     Dates: start: 200907, end: 200910
  3. 5-FLUOROURACIL [Suspect]
     Active Substance: FLUOROURACIL
     Indication: PRODUCT USED FOR UNKNOWN INDICATION
     Dates: start: 200907, end: 200910
  4. 5-FLUOROURACIL [Suspect]
     Active Substance: FLUOROURACIL
     Dosage: UNK
     Dates: start: 20150114
  5. IRINOTECAN [Suspect]
     Active Substance: IRINOTECAN
     Indication: PRODUCT USED FOR UNKNOWN INDICATION
     Dates: start: 200907, end: 200910
  6. 5-FLUOROURACIL [Suspect]
     Active Substance: FLUOROURACIL
     Dates: start: 201410, end: 201412
  7. LEUCOVORIN. [Suspect]
     Active Substance: LEUCOVORIN
     Dosage: UNK
     Dates: start: 201505, end: 201506
  8. LEUCOVORIN. [Suspect]
     Active Substance: LEUCOVORIN
     Dates: start: 201501
  9. FOLFOX [Suspect]
     Active Substance: FLUOROURACIL\LEUCOVORIN CALCIUM\OXALIPLATIN
     Indication: PRODUCT USED FOR UNKNOWN INDICATION
     Dates: start: 2010, end: 201010
  10. FOLFOX [Suspect]
     Active Substance: FLUOROURACIL\LEUCOVORIN CALCIUM\OXALIPLATIN
     Dosage: UNK
     Dates: start: 201402, end: 201408
  11. 5-FLUOROURACIL [Suspect]
     Active Substance: FLUOROURACIL
     Dosage: UNK
     Dates: start: 201505, end: 201506
  12. AVASTIN [Suspect]
     Active Substance: BEVACIZUMAB
     Indication: PRODUCT USED FOR UNKNOWN INDICATION
     Dates: end: 201408
  13. FOLIC ACID. [Suspect]
     Active Substance: FOLIC ACID
     Indication: PRODUCT USED FOR UNKNOWN INDICATION
     Dates: start: 200907, end: 200910
  14. LEUCOVORIN. [Suspect]
     Active Substance: LEUCOVORIN
     Indication: PRODUCT USED FOR UNKNOWN INDICATION
     Dates: start: 201410, end: 201412
  15. LEUCOVORIN. [Suspect]
     Active Substance: LEUCOVORIN
     Dates: start: 201502, end: 201503

REACTIONS (1)
  - Acute lymphocytic leukaemia [Not Recovered/Not Resolved]

NARRATIVE: CASE EVENT DATE: 201507
